FAERS Safety Report 9252782 (Version 2)
Quarter: 2014Q1

REPORT INFORMATION
  Report Type: Spontaneous
  Country: US (occurrence: None)
  Receive Date: 20130305
  Receipt Date: 20140306
  Transmission Date: 20141002
  Serious: Yes (Other)
  Sender: FDA-Public Use
  Company Number: 163-21880-12050026

PATIENT
  Age: 84 Year
  Sex: Female
  Weight: 57.15 kg

DRUGS (17)
  1. REVLIMID (LENALIDOMIDE) (10 MILLIGRAM, CAPSULES) [Suspect]
     Indication: PLASMA CELL MYELOMA
     Dosage: 10 MG, DAILY X 21 DAYS, PO
     Route: 048
     Dates: start: 20080101
  2. DEXAMETHASONE (DEXAMETHASONE) [Concomitant]
  3. CALTRATE (CALCIUM CARBONATE) [Concomitant]
  4. CLARITIN (LORATADINE) [Concomitant]
  5. DIGOXIN (DIGOXIN) [Concomitant]
  6. PLAVIX (CLOPIDOGREL SULFATE) [Concomitant]
  7. TOPROL (METOPROLOL SUCCINATE) [Concomitant]
  8. ASPIRIN (ACETYLSALICYLIC ACID) [Concomitant]
  9. LIPITOR (ATORVASTATIN) [Concomitant]
  10. CARDIZEM (DILTIAZEM HYDROCHLORIDE) [Concomitant]
  11. HEMOCYTE (FERROUS FUMARATE) [Concomitant]
  12. KEPPRA (LEVETIRACETAM) [Concomitant]
  13. SINGULAIR (MONTELUKAST SODIUM) TABLET [Concomitant]
  14. XANAX (ALPRAZOLAM) [Concomitant]
  15. CALCIUM +D (05-CAL) [Concomitant]
  16. PERCOCET (OXYCOCET) [Concomitant]
  17. MAGNESIUM OXIDE [Concomitant]

REACTIONS (12)
  - Constipation [None]
  - Decreased appetite [None]
  - Dysgeusia [None]
  - Nervousness [None]
  - Muscular weakness [None]
  - Weight decreased [None]
  - Increased tendency to bruise [None]
  - Balance disorder [None]
  - Fall [None]
  - Muscle spasms [None]
  - Hyperhidrosis [None]
  - Body height decreased [None]
